FAERS Safety Report 8029358-1 (Version None)
Quarter: 2012Q1

REPORT INFORMATION
  Report Type: 
  Country: None (occurrence: None)
  Receive Date: 20120106
  Receipt Date: 20111228
  Transmission Date: 20120608
  Serious: Yes (Life-Threatening, Hospitalization)
  Sender: FDA-Public Use
  Company Number: US-ELI_LILLY_AND_COMPANY-US201111001836

PATIENT
  Sex: Female
  Weight: 44 kg

DRUGS (11)
  1. ADVAIR DISKUS 100/50 [Concomitant]
  2. FUROSEMIDE [Concomitant]
  3. ALBUTEROL [Concomitant]
  4. VERAPAMIL [Concomitant]
  5. FORTEO [Suspect]
     Indication: OSTEOPOROSIS
     Dosage: 20 UG, UNK
     Dates: start: 20110317, end: 20110919
  6. NEXIUM [Concomitant]
  7. WARFARIN SODIUM [Concomitant]
  8. LISINOPRIL [Concomitant]
  9. ZOLOFT [Concomitant]
  10. CRESTOR [Concomitant]
  11. FORTEO [Suspect]
     Dosage: 20 UG, UNK
     Dates: start: 20110928

REACTIONS (6)
  - ASTHMA [None]
  - CLOSTRIDIUM DIFFICILE COLITIS [None]
  - ACUTE RESPIRATORY FAILURE [None]
  - URINARY RETENTION [None]
  - ATRIAL FIBRILLATION [None]
  - DEHYDRATION [None]
